FAERS Safety Report 18132449 (Version 1)
Quarter: 2020Q3

REPORT INFORMATION
  Report Type: Other
  Country: GB (occurrence: GB)
  Receive Date: 20200811
  Receipt Date: 20200811
  Transmission Date: 20201103
  Serious: Yes (Life-Threatening, Hospitalization)
  Sender: FDA-Public Use
  Company Number: GB-CELLTRION INC.-2020GB025031

PATIENT

DRUGS (29)
  1. LEVOTHYROXINE SODIUM. [Concomitant]
     Active Substance: LEVOTHYROXINE SODIUM
  2. SILDENAFIL. [Concomitant]
     Active Substance: SILDENAFIL
  3. FEXOFENADINE HYDROCHLORIDE. [Concomitant]
     Active Substance: FEXOFENADINE HYDROCHLORIDE
  4. PREGABALIN. [Concomitant]
     Active Substance: PREGABALIN
  5. MEPACRINE [Concomitant]
     Active Substance: QUINACRINE
  6. GLYCEROL [Concomitant]
     Active Substance: GLYCERIN
  7. NIFEDIPINE. [Concomitant]
     Active Substance: NIFEDIPINE
  8. AMITRIPTYLINE [Concomitant]
     Active Substance: AMITRIPTYLINE
  9. DOCUSATE [Concomitant]
     Active Substance: DOCUSATE
  10. SODIUM PIDOLATE [Concomitant]
  11. FUCIBET [Concomitant]
  12. DESOGESTREL [Concomitant]
     Active Substance: DESOGESTREL
  13. MYCOPHENOLIC ACID. [Suspect]
     Active Substance: MYCOPHENOLIC ACID
     Indication: SYSTEMIC LUPUS ERYTHEMATOSUS
     Dosage: 360 MG, DAILY
     Route: 048
     Dates: start: 20200619
  14. MORPHINE [Concomitant]
     Active Substance: MORPHINE
  15. ZOPICLONE [Concomitant]
     Active Substance: ZOPICLONE
  16. BECLOMETASONE DIPROPIONATE [Concomitant]
     Active Substance: BECLOMETHASONE DIPROPIONATE
  17. FLUOXETINE [Concomitant]
     Active Substance: FLUOXETINE HYDROCHLORIDE
  18. COLECALCIFEROL [Concomitant]
     Active Substance: CHOLECALCIFEROL
  19. OMEPRAZOLE. [Concomitant]
     Active Substance: OMEPRAZOLE
  20. TACROLIMUS. [Concomitant]
     Active Substance: TACROLIMUS
  21. ACICLOVIR [Concomitant]
     Active Substance: ACYCLOVIR
  22. DERMOVATE [Concomitant]
     Active Substance: CLOBETASOL
  23. RITUXIMAB (UNKNOWN) [Suspect]
     Active Substance: RITUXIMAB
     Indication: SYSTEMIC LUPUS ERYTHEMATOSUS
     Dosage: 1000MG 25/6/20 AND 1000MG 26/6/20
     Route: 042
     Dates: start: 20200625, end: 20200626
  24. BETAMETHASONE VALERATE. [Concomitant]
     Active Substance: BETAMETHASONE VALERATE
  25. HYDROXYCHLOROQUINE SULFATE. [Concomitant]
     Active Substance: HYDROXYCHLOROQUINE SULFATE
  26. BIOTENE DRY MOUTH [SODIUM FLUOROPHOSPHATE] [Concomitant]
  27. PREDNISOLONE. [Concomitant]
     Active Substance: PREDNISOLONE
  28. TRAMADOL. [Concomitant]
     Active Substance: TRAMADOL
  29. PARACETAMOL [Concomitant]
     Active Substance: ACETAMINOPHEN

REACTIONS (7)
  - Malaise [Unknown]
  - Mouth ulceration [Unknown]
  - Skin exfoliation [Unknown]
  - Rash macular [Unknown]
  - Stevens-Johnson syndrome [Not Recovered/Not Resolved]
  - Periorbital swelling [Unknown]
  - Off label use [Unknown]

NARRATIVE: CASE EVENT DATE: 20200626
